FAERS Safety Report 8896473 (Version 1)
Quarter: 2012Q4

REPORT INFORMATION
  Report Type: Spontaneous
  Country: US (occurrence: None)
  Receive Date: 20121107
  Receipt Date: 20121107
  Transmission Date: 20130627
  Serious: Yes (Life-Threatening, Hospitalization, Disabling, Other)
  Sender: FDA-Public Use
  Company Number: None

PATIENT
  Age: 54 Year
  Sex: Female
  Weight: 63.5 kg

DRUGS (1)
  1. NUVARING [Suspect]
     Indication: MENORRHAGIA
     Route: 067
     Dates: start: 20120731, end: 20121014

REACTIONS (2)
  - Deep vein thrombosis [None]
  - Pulmonary embolism [None]
